FAERS Safety Report 9196389 (Version 1)
Quarter: 2013Q1

REPORT INFORMATION
  Report Type: Spontaneous
  Country: FR (occurrence: FR)
  Receive Date: 20130328
  Receipt Date: 20130328
  Transmission Date: 20140127
  Serious: Yes (Life-Threatening, Hospitalization)
  Sender: FDA-Public Use
  Company Number: FR-BRISTOL-MYERS SQUIBB COMPANY-18700237

PATIENT
  Age: 90 Year
  Sex: Female

DRUGS (8)
  1. COUMADIN TABS [Suspect]
     Indication: ATRIAL FIBRILLATION
     Route: 048
  2. CORDARONE [Concomitant]
  3. ATHYMIL [Concomitant]
  4. TRINIPATCH [Concomitant]
  5. ZOLPIDEM [Concomitant]
  6. AMLOR [Concomitant]
  7. APROVEL [Concomitant]
  8. ACTONEL [Concomitant]

REACTIONS (6)
  - Haemothorax [Recovered/Resolved]
  - International normalised ratio increased [Recovered/Resolved]
  - Fall [Recovered/Resolved]
  - Anaemia [Recovered/Resolved]
  - Rib fracture [Recovered/Resolved]
  - Thoracic vertebral fracture [Recovered/Resolved]
